FAERS Safety Report 12587491 (Version 4)
Quarter: 2017Q2

REPORT INFORMATION
  Report Type: Spontaneous
  Country: JP (occurrence: JP)
  Receive Date: 20160725
  Receipt Date: 20170420
  Transmission Date: 20170830
  Serious: Yes (Death, Life-Threatening, Hospitalization, Other)
  Sender: FDA-Public Use
  Company Number: JP-ROCHE-1801223

PATIENT
  Age: 84 Year
  Sex: Female
  Weight: 49.8 kg

DRUGS (11)
  1. XOLAIR [Suspect]
     Active Substance: OMALIZUMAB
     Indication: ASTHMA
     Dosage: MOST RECENT DOSE: 06/JUN/2016
     Route: 058
     Dates: start: 20160204
  2. NEXIUM [Concomitant]
     Active Substance: ESOMEPRAZOLE MAGNESIUM
     Indication: PROPHYLAXIS
     Dosage: 20 MG, QD
     Route: 048
     Dates: start: 20141014, end: 20160720
  3. MUCOSOLVAN [Concomitant]
     Active Substance: AMBROXOL HYDROCHLORIDE
     Indication: ASTHMA
     Dosage: 15 MG, TID
     Route: 048
     Dates: start: 20141014, end: 20160720
  4. SPIRONOLACTONE. [Concomitant]
     Active Substance: SPIRONOLACTONE
     Indication: CARDIAC FAILURE
     Dosage: 25 MG, UNK
     Route: 048
     Dates: start: 20141014, end: 20160720
  5. CRESTOR [Concomitant]
     Active Substance: ROSUVASTATIN CALCIUM
     Indication: HYPERLIPIDAEMIA
     Dosage: 2.5 MG, QD
     Route: 048
     Dates: start: 20141014, end: 20160720
  6. LASIX [Concomitant]
     Active Substance: FUROSEMIDE
     Indication: CARDIAC FAILURE
     Dosage: 20 MG, QD
     Route: 048
     Dates: start: 20141014, end: 20160720
  7. RELVAR [Concomitant]
     Active Substance: FLUTICASONE FUROATE\VILANTEROL TRIFENATATE
     Indication: ASTHMA
     Dosage: 1 DF, UNK
     Route: 055
     Dates: start: 20141014, end: 20160720
  8. EDIROL [Concomitant]
     Active Substance: ELDECALCITOL
     Indication: OSTEOPOROSIS
     Dosage: 0.75 MG, QD
     Route: 048
     Dates: start: 20141014, end: 20160720
  9. PREDONINE [Suspect]
     Active Substance: PREDNISOLONE
     Route: 048
     Dates: start: 20160719
  10. MUCOSTA [Concomitant]
     Active Substance: REBAMIPIDE
     Indication: PROPHYLAXIS
     Dosage: 100 MG, TID
     Route: 048
     Dates: start: 20141014, end: 20160720
  11. PREDONINE [Suspect]
     Active Substance: PREDNISOLONE
     Indication: ASTHMA
     Route: 048
     Dates: start: 20141014

REACTIONS (21)
  - Hepatic function abnormal [Unknown]
  - Dyspnoea [Fatal]
  - Depressed level of consciousness [Fatal]
  - Asthma [Recovering/Resolving]
  - Red blood cell count decreased [Recovering/Resolving]
  - Bacteraemia [Fatal]
  - Staphylococcal infection [Fatal]
  - Sepsis [Fatal]
  - Hyperhidrosis [Fatal]
  - Ventricular fibrillation [Fatal]
  - C-reactive protein increased [Not Recovered/Not Resolved]
  - Hypoglycaemia [Not Recovered/Not Resolved]
  - Blood pressure abnormal [Not Recovered/Not Resolved]
  - Multiple organ dysfunction syndrome [Fatal]
  - Cyanosis [Fatal]
  - Respiratory arrest [Fatal]
  - Prothrombin time ratio decreased [Not Recovered/Not Resolved]
  - White blood cell count increased [Recovering/Resolving]
  - Wheezing [Recovering/Resolving]
  - Lymphocyte percentage decreased [Not Recovered/Not Resolved]
  - Blood glucose increased [Recovered/Resolved]

NARRATIVE: CASE EVENT DATE: 20160419
